FAERS Safety Report 7727041-0 (Version None)
Quarter: 2011Q3

REPORT INFORMATION
  Report Type: 
  Country: None (occurrence: None)
  Receive Date: 20110902
  Receipt Date: 20110826
  Transmission Date: 20111222
  Serious: Yes (Other)
  Sender: FDA-Public Use
  Company Number: US-ABBOTT-11P-163-0849908-00

PATIENT
  Sex: Male

DRUGS (3)
  1. HUMIRA [Suspect]
     Route: 063
  2. HUMIRA [Suspect]
     Indication: MATERNAL EXPOSURE DURING PREGNANCY
     Route: 064
  3. HUMIRA [Suspect]
     Route: 064

REACTIONS (9)
  - EXPOSURE DURING BREAST FEEDING [None]
  - MATERNAL EXPOSURE DURING PREGNANCY [None]
  - EAR INFECTION [None]
  - EXPRESSIVE LANGUAGE DISORDER [None]
  - SPEECH DISORDER [None]
  - PNEUMOTHORAX [None]
  - HEARING IMPAIRED [None]
  - NEONATAL ASPIRATION [None]
  - HYPOSPADIAS [None]
